FAERS Safety Report 9220232 (Version 1)
Quarter: 2013Q2

REPORT INFORMATION
  Report Type: Spontaneous
  Country: GB (occurrence: GB)
  Receive Date: 20130409
  Receipt Date: 20130409
  Transmission Date: 20140414
  Serious: Yes (Other)
  Sender: FDA-Public Use
  Company Number: GB-PFIZER INC-2013106576

PATIENT
  Age: 11 Month
  Sex: Male
  Weight: 11 kg

DRUGS (1)
  1. CHLORAMPHENICOL SODIUM SUCCINATE [Suspect]
     Dates: start: 20130320

REACTIONS (4)
  - Application site erythema [Recovered/Resolved]
  - Eye swelling [Unknown]
  - Orbital oedema [Unknown]
  - Hypersensitivity [Unknown]
